FAERS Safety Report 8248665 (Version 5)
Quarter: 2012Q4

REPORT INFORMATION
  Report Type: Report from Study
  Country: US (occurrence: US)
  Receive Date: 20111117
  Receipt Date: 20121022
  Transmission Date: 20130627
  Serious: Yes (Hospitalization)
  Sender: FDA-Public Use
  Company Number: US-ABBOTT-11P-163-0872384-00

PATIENT
  Age: 25 None
  Sex: Female
  Weight: 46.31 kg

DRUGS (6)
  1. HUMIRA [Suspect]
     Indication: CROHN^S DISEASE
     Dosage: Baseline
     Route: 058
     Dates: start: 20070815, end: 20070815
  2. HUMIRA [Suspect]
     Dosage: Week 2
     Route: 058
  3. HUMIRA [Suspect]
     Route: 058
     Dates: start: 20080716, end: 20090227
  4. CERTOLIZUMAB PEGOL [Concomitant]
     Indication: PRODUCT USED FOR UNKNOWN INDICATION
  5. CORTICOSTEROIDS [Concomitant]
     Indication: PRODUCT USED FOR UNKNOWN INDICATION
  6. IMMUNOSUPPRESSANTS [Concomitant]
     Indication: PRODUCT USED FOR UNKNOWN INDICATION

REACTIONS (11)
  - Portal vein thrombosis [Unknown]
  - Thrombosis [Unknown]
  - Device related infection [Unknown]
  - Scar [Unknown]
  - Crohn^s disease [Unknown]
  - Intestinal resection [Unknown]
  - Anal stenosis [Unknown]
  - Crohn^s disease [Unknown]
  - Crohn^s disease [Unknown]
  - Anal stenosis [Unknown]
  - Crohn^s disease [Unknown]
